FAERS Safety Report 13285226 (Version 1)
Quarter: 2017Q1

REPORT INFORMATION
  Report Type: Spontaneous
  Country: SE (occurrence: SE)
  Receive Date: 20170301
  Receipt Date: 20170301
  Transmission Date: 20170428
  Serious: Yes (Hospitalization)
  Sender: FDA-Public Use
  Company Number: SE-SHIRE-SE201703617

PATIENT
  Age: 13 Year
  Sex: Female

DRUGS (1)
  1. ELVANSE [Suspect]
     Active Substance: LISDEXAMFETAMINE DIMESYLATE
     Indication: ATTENTION DEFICIT/HYPERACTIVITY DISORDER
     Dosage: 30 MG, 1X/DAY:QD
     Route: 048
     Dates: start: 20170105

REACTIONS (3)
  - Affect lability [Not Recovered/Not Resolved]
  - Aggression [Not Recovered/Not Resolved]
  - Hostility [Not Recovered/Not Resolved]

NARRATIVE: CASE EVENT DATE: 20170112
